FAERS Safety Report 5227425-9 (Version None)
Quarter: 2007Q1

REPORT INFORMATION
  Report Type: 
  Country: None (occurrence: None)
  Receive Date: 20070202
  Receipt Date: 20070125
  Transmission Date: 20070707
  Serious: Yes (Hospitalization, Other)
  Sender: FDA-Public Use
  Company Number: US-ELI_LILLY_AND_COMPANY-US200608006862

PATIENT
  Age: 80 Year
  Sex: Female

DRUGS (5)
  1. HUMALOG [Suspect]
     Indication: DIABETES MELLITUS
     Dosage: PER SLIDING SCALE
     Dates: start: 19670101
  2. HUMALOG [Suspect]
     Dosage: UNK, AS NEEDED
  3. HUMULIN N [Suspect]
     Indication: DIABETES MELLITUS
     Dosage: 16 UNITS IN THE MORNING
  4. HUMALOG MIX 75/25 [Suspect]
     Indication: DIABETES MELLITUS
     Dosage: UNK, UNKNOWN
     Dates: start: 19670101
  5. ALL OTHER THERAPEUTIC PRODUCTS [Concomitant]
     Dosage: UNK, UNKNOWN

REACTIONS (4)
  - ANKLE FRACTURE [None]
  - BLINDNESS UNILATERAL [None]
  - BLOOD GLUCOSE DECREASED [None]
  - LOSS OF CONSCIOUSNESS [None]
